FAERS Safety Report 11413392 (Version 2)
Quarter: 2015Q3

REPORT INFORMATION
  Report Type: Spontaneous
  Country: US (occurrence: US)
  Receive Date: 20150821
  Receipt Date: 20150903
  Transmission Date: 20151125
  Serious: No
  Sender: FDA-Public Use
  Company Number: US-ELI_LILLY_AND_COMPANY-US201210005161

PATIENT
  Age: 64 Year
  Sex: Female

DRUGS (3)
  1. HUMALOG MIX75/25 [Suspect]
     Active Substance: INSULIN LISPRO
     Indication: TYPE 2 DIABETES MELLITUS
     Dosage: 50 U, QD
  2. HUMULIN 70/30 [Suspect]
     Active Substance: INSULIN HUMAN
  3. HUMULIN 70/30 [Suspect]
     Active Substance: INSULIN HUMAN

REACTIONS (7)
  - Oropharyngeal pain [Not Recovered/Not Resolved]
  - Oropharyngitis fungal [Unknown]
  - Intercepted product selection error [Unknown]
  - Gastrooesophageal reflux disease [Unknown]
  - Blood glucose increased [Unknown]
  - Drug dispensing error [Unknown]
  - Drug ineffective [Unknown]

NARRATIVE: CASE EVENT DATE: 20121015
